FAERS Safety Report 17279642 (Version 1)
Quarter: 2020Q1

REPORT INFORMATION
  Report Type: Spontaneous
  Country: NO (occurrence: NO)
  Receive Date: 20200116
  Receipt Date: 20200116
  Transmission Date: 20200409
  Serious: Yes (Disabling, Other)
  Sender: FDA-Public Use
  Company Number: NO-BAUSCH-BL-2020-001346

PATIENT
  Age: 14 Year
  Sex: Female

DRUGS (2)
  1. PREDNISOLONE. [Suspect]
     Active Substance: PREDNISOLONE
     Indication: JUVENILE IDIOPATHIC ARTHRITIS
     Route: 048
     Dates: start: 200706
  2. METHOTREXATE. [Suspect]
     Active Substance: METHOTREXATE
     Indication: JUVENILE IDIOPATHIC ARTHRITIS
     Dosage: MAXIMUM 10 MG/WEEK
     Route: 065
     Dates: start: 200708

REACTIONS (2)
  - Tooth development disorder [Recovered/Resolved with Sequelae]
  - Osteosclerosis [Recovered/Resolved with Sequelae]
